FAERS Safety Report 6215916-3 (Version None)
Quarter: 2009Q2

REPORT INFORMATION
  Report Type: 
  Country: None (occurrence: None)
  Receive Date: 20090603
  Receipt Date: 20090521
  Transmission Date: 20091009
  Serious: Yes (Hospitalization)
  Sender: FDA-Public Use
  Company Number: FABR-1000775

PATIENT
  Age: 21 Year
  Sex: Male
  Weight: 70 kg

DRUGS (2)
  1. FABRAZYME [Suspect]
     Indication: FABRY'S DISEASE
     Dosage: 1 MG/KG, Q2W; INTRAVENOUS
     Route: 042
     Dates: start: 20080529
  2. MEDROL [Concomitant]

REACTIONS (6)
  - ARTHRALGIA [None]
  - CHILLS [None]
  - HEADACHE [None]
  - INFUSION RELATED REACTION [None]
  - MUSCLE SPASMS [None]
  - PYREXIA [None]
